FAERS Safety Report 10944961 (Version 1)
Quarter: 2015Q1

REPORT INFORMATION
  Report Type: Spontaneous
  Country: AR (occurrence: AR)
  Receive Date: 20150323
  Receipt Date: 20150323
  Transmission Date: 20150721
  Serious: Yes (Hospitalization)
  Sender: FDA-Public Use
  Company Number: AR-SA-2015SA032119

PATIENT
  Age: 70 Year
  Sex: Male
  Weight: 50 kg

DRUGS (4)
  1. GADOLAX [Concomitant]
     Dosage: DOSE: 1 TEASPOON
     Route: 048
  2. DIUREX [Concomitant]
     Active Substance: PAMABROM
     Indication: HYPERTENSION
     Dosage: 1 TABLET/DAY-AFTER THE EVENTDOSE CHANGED TO1/2 TABLET PER DAY
     Route: 048
  3. CEREZYME [Suspect]
     Active Substance: IMIGLUCERASE
     Indication: GAUCHER^S DISEASE
     Dosage: DOSE:12 UNIT(S)/KILOGRAM BODYWEIGHT
     Route: 041
     Dates: start: 2001
  4. CALCITRIOL. [Concomitant]
     Active Substance: CALCITRIOL
     Dosage: START DATE: AFTER LAST BONE DENSITOMETRY
     Route: 048

REACTIONS (4)
  - Blood pressure decreased [Recovered/Resolved]
  - Hypoglycaemia [Recovered/Resolved]
  - Anaemia [Recovered/Resolved]
  - Blood potassium decreased [Recovered/Resolved]

NARRATIVE: CASE EVENT DATE: 20150306
